FAERS Safety Report 5128632-6 (Version None)
Quarter: 2006Q4

REPORT INFORMATION
  Report Type: 
  Country: None (occurrence: None)
  Receive Date: 20061011
  Receipt Date: 20060928
  Transmission Date: 20070319
  Serious: Yes (Other)
  Sender: FDA-Public Use
  Company Number: 2006BI013860

PATIENT
  Age: 54 Year
  Sex: Female
  Weight: 73.0291 kg

DRUGS (2)
  1. AVONEX [Suspect]
     Indication: MULTIPLE SCLEROSIS
     Dosage: IM
     Route: 030
     Dates: start: 20040401, end: 20060623
  2. BETASERON [Concomitant]

REACTIONS (7)
  - ANXIETY [None]
  - BLOOD POTASSIUM INCREASED [None]
  - EXTRASYSTOLES [None]
  - FRUSTRATION [None]
  - HEPATITIS C [None]
  - INJECTION SITE PAIN [None]
  - PHOBIA [None]
